FAERS Safety Report 22737925 (Version 2)
Quarter: 2025Q1

REPORT INFORMATION
  Report Type: Report from Study
  Country: DE (occurrence: DE)
  Receive Date: 20230721
  Receipt Date: 20250103
  Transmission Date: 20250409
  Serious: Yes (Other)
  Sender: RANBAXY
  Company Number: DE-SUN PHARMACEUTICAL INDUSTRIES LTD-2023RR-399571

PATIENT
  Age: 80 Year
  Sex: Male

DRUGS (13)
  1. SONIDEGIB [Suspect]
     Active Substance: SONIDEGIB
     Indication: Basal cell carcinoma
     Dosage: 200 MILLIGRAM, DAILY
     Route: 048
     Dates: start: 20210512, end: 20220427
  2. SONIDEGIB [Suspect]
     Active Substance: SONIDEGIB
     Route: 048
  3. Bisoprolol fumaratan [Concomitant]
     Indication: Pre-existing disease
     Dosage: 5 MILLIGRAM, DAILY
     Route: 048
  4. Sitagliptin phosphat-1-Wasser [Concomitant]
     Indication: Pre-existing disease
     Dosage: 50 MILLIGRAM, DAILY
     Route: 048
  5. PERINDOPRIL ERBUMINE [Concomitant]
     Active Substance: PERINDOPRIL ERBUMINE
     Indication: Pre-existing disease
     Dosage: 4 MILLIGRAM, DAILY
     Route: 048
  6. ALFACALCIDOL [Concomitant]
     Active Substance: ALFACALCIDOL
     Indication: Pre-existing disease
     Route: 048
  7. CYANOCOBALAMIN [Concomitant]
     Active Substance: CYANOCOBALAMIN
     Indication: Pre-existing disease
     Route: 030
  8. Febuxastat [Concomitant]
     Indication: Pre-existing disease
     Dosage: 80 MILLIGRAM, DAILY
     Route: 048
  9. PYRIDOXINE [Concomitant]
     Active Substance: PYRIDOXINE
     Indication: Pre-existing disease
     Route: 048
  10. LISINOPRIL [Concomitant]
     Active Substance: LISINOPRIL
     Indication: Pre-existing disease
     Dosage: 10 MILLIGRAM, DAILY
     Route: 048
  11. PANTOPRAZOLE SODIUM [Concomitant]
     Active Substance: PANTOPRAZOLE SODIUM
     Indication: Pre-existing disease
     Dosage: 40 MILLIGRAM, DAILY
     Route: 048
  12. ATORVASTATIN [Concomitant]
     Active Substance: ATORVASTATIN
     Indication: Pre-existing disease
     Dosage: 20 MILLIGRAM, DAILY
     Route: 048
  13. Aldara 5% [Concomitant]
     Indication: Basal cell naevus syndrome
     Route: 008
     Dates: start: 20230501

REACTIONS (1)
  - Basal cell carcinoma [Not Recovered/Not Resolved]

NARRATIVE: CASE EVENT DATE: 20220627
